FAERS Safety Report 6307685-3 (Version None)
Quarter: 2009Q3

REPORT INFORMATION
  Report Type: 
  Country: None (occurrence: None)
  Receive Date: 20090813
  Receipt Date: 20090804
  Transmission Date: 20100115
  Serious: Yes (Other)
  Sender: FDA-Public Use
  Company Number: PHHY2009GB27068

PATIENT
  Sex: Female

DRUGS (3)
  1. ACLASTA [Suspect]
     Indication: OSTEOPOROSIS
     Dosage: 5 MG
     Route: 042
     Dates: start: 20090605
  2. CALCIUM [Concomitant]
     Indication: OSTEOPOROSIS
     Route: 048
  3. VITAMIN D [Concomitant]
     Route: 048

REACTIONS (3)
  - APATHY [None]
  - DEPRESSED MOOD [None]
  - URINARY TRACT INFECTION [None]
